FAERS Safety Report 9428723 (Version 1)
Quarter: 2013Q3

REPORT INFORMATION
  Report Type: Report from Study
  Country: US (occurrence: US)
  Receive Date: 20130730
  Receipt Date: 20130730
  Transmission Date: 20140515
  Serious: No
  Sender: FDA-Public Use
  Company Number: US-ABBOTT-12P-163-1028364-00

PATIENT
  Age: 57 Year
  Sex: Female

DRUGS (1)
  1. NIASPAN (COATED) [Suspect]
     Indication: LOW DENSITY LIPOPROTEIN INCREASED
     Dates: start: 20121127, end: 20121224

REACTIONS (1)
  - Nausea [Recovered/Resolved]
